FAERS Safety Report 7554098-2 (Version None)
Quarter: 2011Q2

REPORT INFORMATION
  Report Type: 
  Country: None (occurrence: None)
  Receive Date: 20110617
  Receipt Date: 20110609
  Transmission Date: 20111010
  Serious: Yes (Hospitalization)
  Sender: FDA-Public Use
  Company Number: FI-MILLENNIUM PHARMACEUTICALS, INC.-2011-02452

PATIENT

DRUGS (8)
  1. ALLONOL [Concomitant]
     Dosage: 300 MG, UNK
     Route: 048
  2. VELCADE [Suspect]
     Indication: MULTIPLE MYELOMA
     Dosage: 2.33 MG, UNK
     Route: 042
     Dates: start: 20110524, end: 20110608
  3. KALCIPOS-D [Concomitant]
     Dosage: 500 MG, UNK
     Route: 048
  4. OMEPRAZOLE [Concomitant]
     Dosage: 40 MG, UNK
     Route: 048
  5. ACYCLOVIR [Concomitant]
     Dosage: 400 MG, UNK
     Route: 048
  6. DEXAMETHASONE [Suspect]
     Indication: MULTIPLE MYELOMA
     Dosage: 40 MG, UNK
     Route: 048
     Dates: start: 20110524, end: 20110527
  7. TARGIN [Concomitant]
     Route: 065
  8. LYRICA [Concomitant]
     Dosage: 75 MG, UNK
     Route: 048

REACTIONS (1)
  - INFECTION [None]
